FAERS Safety Report 24837583 (Version 2)
Quarter: 2025Q1

REPORT INFORMATION
  Report Type: Spontaneous
  Country: US (occurrence: US)
  Receive Date: 20250113
  Receipt Date: 20250218
  Transmission Date: 20250409
  Serious: No
  Sender: PFIZER
  Company Number: US-PFIZER INC-PV202400170699

PATIENT

DRUGS (2)
  1. SOMATROPIN [Suspect]
     Active Substance: SOMATROPIN
     Indication: Hypopituitarism
  2. SOMATROPIN [Suspect]
     Active Substance: SOMATROPIN
     Indication: Bone disorder

REACTIONS (3)
  - Device delivery system issue [Unknown]
  - Product packaging quantity issue [Unknown]
  - Device physical property issue [Unknown]
